FAERS Safety Report 5506393-6 (Version None)
Quarter: 2007Q4

REPORT INFORMATION
  Report Type: 
  Country: None (occurrence: None)
  Receive Date: 20071105
  Receipt Date: 20071025
  Transmission Date: 20080405
  Serious: Yes (Other)
  Sender: FDA-Public Use
  Company Number: NL-AMGEN-US250342

PATIENT
  Sex: Female

DRUGS (2)
  1. ENBREL [Suspect]
     Indication: RHEUMATOID ARTHRITIS
     Route: 058
     Dates: start: 20070801, end: 20071016
  2. HYZAAR [Concomitant]
     Indication: HYPERTENSION
     Dosage: 50/12.5MG 1 TIME PER DAY

REACTIONS (1)
  - SKIN REACTION [None]
